FAERS Safety Report 6177219-5 (Version None)
Quarter: 2009Q2

REPORT INFORMATION
  Report Type: 
  Country: None (occurrence: None)
  Receive Date: 20090504
  Receipt Date: 20090423
  Transmission Date: 20091009
  Serious: Yes (Hospitalization, Other)
  Sender: FDA-Public Use
  Company Number: PHHY2009JP10477

PATIENT
  Sex: Male
  Weight: 58 kg

DRUGS (3)
  1. NEORAL [Suspect]
     Indication: DERMATITIS ATOPIC
     Dosage: 150 MG DAILY
     Route: 048
     Dates: start: 20090210, end: 20090224
  2. GASTER [Concomitant]
     Dosage: UNK
     Route: 048
     Dates: end: 20090303
  3. LIPITOR [Concomitant]
     Dosage: UNK
     Route: 048
     Dates: end: 20090303

REACTIONS (12)
  - BENIGN PROSTATIC HYPERPLASIA [None]
  - BLADDER CATHETER REMOVAL [None]
  - BLADDER CATHETERISATION [None]
  - CONDITION AGGRAVATED [None]
  - HYDRONEPHROSIS [None]
  - NOCTURIA [None]
  - POSTRENAL FAILURE [None]
  - RENAL IMPAIRMENT [None]
  - RESIDUAL URINE [None]
  - TRANSURETHRAL PROSTATECTOMY [None]
  - URETHRAL STENOSIS [None]
  - URINARY RETENTION [None]
